FAERS Safety Report 11918275 (Version 6)
Quarter: 2017Q4

REPORT INFORMATION
  Report Type: Report from Study
  Country: CA (occurrence: CA)
  Receive Date: 20160115
  Receipt Date: 20171031
  Transmission Date: 20180320
  Serious: Yes (Life-Threatening, Hospitalization)
  Sender: FDA-Public Use
  Company Number: CA-ROCHE-ITM201506IM017319

PATIENT
  Age: 86 Year
  Sex: Female
  Weight: 68 kg

DRUGS (10)
  1. ESBRIET [Suspect]
     Active Substance: PIRFENIDONE
     Route: 048
     Dates: start: 20150225
  2. MOTILIUM [Concomitant]
     Active Substance: DOMPERIDONE
  3. AVAPRO [Concomitant]
     Active Substance: IRBESARTAN
  4. ESBRIET [Suspect]
     Active Substance: PIRFENIDONE
     Indication: IDIOPATHIC PULMONARY FIBROSIS
     Route: 048
     Dates: start: 20150218
  5. APO-HYDRO [Concomitant]
     Active Substance: HYDROCHLOROTHIAZIDE
  6. ESBRIET [Suspect]
     Active Substance: PIRFENIDONE
     Route: 048
     Dates: start: 20150304
  7. PANTOLOC [Concomitant]
     Active Substance: PANTOPRAZOLE SODIUM
  8. METAMUCIL [Concomitant]
     Active Substance: PLANTAGO SEED
  9. ESBRIET [Suspect]
     Active Substance: PIRFENIDONE
     Route: 048
     Dates: start: 20150501
  10. ESBRIET [Suspect]
     Active Substance: PIRFENIDONE
     Route: 048
     Dates: start: 201605

REACTIONS (5)
  - Sunburn [Recovering/Resolving]
  - Lip blister [Recovering/Resolving]
  - Myocardial infarction [Unknown]
  - Photosensitivity reaction [Unknown]
  - Carbon monoxide diffusing capacity decreased [Unknown]

NARRATIVE: CASE EVENT DATE: 201505
